FAERS Safety Report 4837643-7 (Version None)
Quarter: 2005Q4

REPORT INFORMATION
  Report Type: 
  Country: None (occurrence: None)
  Receive Date: 20051128
  Receipt Date: 20051116
  Transmission Date: 20060501
  Serious: Yes (Other)
  Sender: FDA-Public Use
  Company Number: NL-AMGEN-UK155314

PATIENT
  Sex: Female

DRUGS (3)
  1. NEULASTA [Suspect]
     Indication: AGRANULOCYTOSIS
     Route: 058
     Dates: start: 20051011, end: 20051011
  2. PILOCARPINE [Concomitant]
     Route: 065
     Dates: start: 20000101
  3. HYDROXYCHLOROQUINE SULFATE [Concomitant]
     Route: 048
     Dates: start: 20000101

REACTIONS (4)
  - ERYTHEMA [None]
  - INFLAMMATION [None]
  - PRURITUS GENERALISED [None]
  - RASH ERYTHEMATOUS [None]
